FAERS Safety Report 4341914-0 (Version None)
Quarter: 2004Q2

REPORT INFORMATION
  Report Type: 
  Country: None (occurrence: None)
  Receive Date: 20040413
  Receipt Date: 20040401
  Transmission Date: 20050107
  Serious: No
  Sender: FDA-Public Use
  Company Number: 04H-163-0256281-00

PATIENT
  Sex: 0

DRUGS (1)
  1. FENTANYL CITRATE [Suspect]
     Indication: SEDATION
     Dosage: 0.025 - 0.05 MG, ONCE, INTRAVENOUS
     Route: 042
     Dates: start: 20040401, end: 20040401

REACTIONS (4)
  - APNOEA [None]
  - DRUG EFFECT INCREASED [None]
  - HYPOTENSION [None]
  - PCO2 INCREASED [None]
